FAERS Safety Report 5187675-7 (Version None)
Quarter: 2006Q4

REPORT INFORMATION
  Report Type: 
  Country: None (occurrence: None)
  Receive Date: 20061214
  Receipt Date: 20061205
  Transmission Date: 20070319
  Serious: Yes (Other)
  Sender: FDA-Public Use
  Company Number: 06-0151PO

PATIENT
  Age: 24 Year
  Sex: Female

DRUGS (1)
  1. PONSTAL [Suspect]
     Indication: ANALGESIC EFFECT
     Dosage: 250MG, X1,PO
     Route: 048

REACTIONS (2)
  - EXTRAPYRAMIDAL DISORDER [None]
  - JOINT HYPEREXTENSION [None]
